FAERS Safety Report 22522294 (Version 1)
Quarter: 2023Q2

REPORT INFORMATION
  Report Type: Spontaneous
  Country: KR (occurrence: KR)
  Receive Date: 20230605
  Receipt Date: 20230605
  Transmission Date: 20230721
  Serious: Yes (Hospitalization, Other)
  Sender: FDA-Public Use
  Company Number: KR-ORGANON-O2305KOR003142

PATIENT
  Age: 73 Year
  Sex: Female
  Weight: 51.5 kg

DRUGS (7)
  1. COZAAR [Suspect]
     Active Substance: LOSARTAN POTASSIUM
     Dosage: UNK; FORMULATION: FILM-COATED TABLET
     Dates: start: 20181218
  2. CAMOSTAT MESYLATE [Concomitant]
     Active Substance: CAMOSTAT MESYLATE
     Dosage: UNK
     Dates: start: 20181105
  3. ITOPRIDE HYDROCHLORIDE [Concomitant]
     Active Substance: ITOPRIDE HYDROCHLORIDE
     Dosage: UNK
     Dates: start: 20190207
  4. MAGNESIUM OXIDE [Concomitant]
     Active Substance: MAGNESIUM OXIDE
     Dosage: UNK; FORMULATION: HARD CAPSULES, POWDER
     Dates: start: 20190207
  5. BACILLUS SUBTILIS;ENTEROCOCCUS FAECIUM [Concomitant]
     Dosage: UNK, FORMULATION: ENTERIC FILM-COATED CAPSULES
     Dates: start: 20181008
  6. CELLULASE;DIMETICONE;OX BILE;PANCREATIN [Concomitant]
     Dosage: UNK, FORMULATION: ENTERIC-COATED FILM-COATED TABLETS
     Dates: start: 20190207
  7. POLAPREZINC [Concomitant]
     Active Substance: POLAPREZINC
     Dosage: UNK, FORMULATION: UNCOATED TABLET
     Dates: start: 20190207

REACTIONS (2)
  - Cataract [Recovered/Resolved]
  - Cataract [Recovered/Resolved]

NARRATIVE: CASE EVENT DATE: 20190319
